FAERS Safety Report 6252304-8 (Version None)
Quarter: 2009Q3

REPORT INFORMATION
  Report Type: 
  Country: None (occurrence: None)
  Receive Date: 20090701
  Receipt Date: 20060420
  Transmission Date: 20100115
  Serious: Yes (Hospitalization)
  Sender: FDA-Public Use
  Company Number: US-ROCHE-639237

PATIENT
  Sex: Male

DRUGS (6)
  1. ENFUVIRTIDE [Suspect]
     Route: 065
     Dates: start: 20031031, end: 20080215
  2. KALETRA [Concomitant]
     Dates: start: 20031031, end: 20080215
  3. VIRAMUNE [Concomitant]
     Dates: start: 20031031, end: 20061120
  4. ZERIT [Concomitant]
     Dates: start: 20031031, end: 20080215
  5. DIFLUCAN [Concomitant]
     Dosage: FREQUENCY: QD
     Dates: start: 20041008, end: 20080215
  6. ZITHROMAX [Concomitant]
     Dates: start: 20050228, end: 20080215

REACTIONS (3)
  - DEPRESSION [None]
  - HYPOKALAEMIA [None]
  - PULMONARY EMBOLISM [None]
